FAERS Safety Report 21201683 (Version 1)
Quarter: 2022Q3

REPORT INFORMATION
  Report Type: Spontaneous
  Country: IT (occurrence: IT)
  Receive Date: 20220811
  Receipt Date: 20220811
  Transmission Date: 20221027
  Serious: Yes (Hospitalization)
  Sender: FDA-Public Use
  Company Number: None

PATIENT
  Age: 91 Year
  Sex: Male
  Weight: 62 kg

DRUGS (9)
  1. MOLNUPIRAVIR [Suspect]
     Active Substance: MOLNUPIRAVIR
     Dosage: 4+4 CAPSULE 200MG / DAY
     Route: 048
     Dates: start: 20220523, end: 20220528
  2. CHOLECALCIFEROL [Concomitant]
     Active Substance: CHOLECALCIFEROL
     Dosage: 100000 INTERNATIONAL UNIT
  3. LASIX [Concomitant]
     Active Substance: FUROSEMIDE
     Dosage: 1 FL 20MG/2ML
  4. MEDROL [Concomitant]
     Active Substance: METHYLPREDNISOLONE
     Dosage: 4 MILLIGRAM, DAY
  5. ASPIRIN [Concomitant]
     Active Substance: ASPIRIN
     Dosage: 100 MILLIGRAM, DAY
  6. LYRICA [Concomitant]
     Active Substance: PREGABALIN
     Dosage: 25 MILLIGRAM, DAY
  7. LANSOPRAZOLE [Concomitant]
     Active Substance: LANSOPRAZOLE
     Dosage: 15 MILLIGRAM, DAY
  8. ENOXAPARIN SODIUM [Concomitant]
     Active Substance: ENOXAPARIN SODIUM
     Dosage: 4000 IU
  9. SILODOSIN [Concomitant]
     Active Substance: SILODOSIN
     Dosage: 4 MILLIGRAM, DAY

REACTIONS (1)
  - Vascular stent thrombosis [Not Recovered/Not Resolved]

NARRATIVE: CASE EVENT DATE: 20220616
